FAERS Safety Report 17520328 (Version 1)
Quarter: 2020Q1

REPORT INFORMATION
  Report Type: Report from Study
  Country: CA (occurrence: CA)
  Receive Date: 20200310
  Receipt Date: 20200310
  Transmission Date: 20200409
  Serious: Yes (Other)
  Sender: FDA-Public Use
  Company Number: NVSC2020CA066474

PATIENT
  Age: 38 Year
  Sex: Male

DRUGS (1)
  1. GILENYA [Suspect]
     Active Substance: FINGOLIMOD HYDROCHLORIDE
     Indication: PRODUCT USED FOR UNKNOWN INDICATION
     Dosage: UNK
     Route: 065
     Dates: start: 20140409

REACTIONS (13)
  - Visual acuity reduced [Unknown]
  - Muscle spasticity [Unknown]
  - Extensor plantar response [Unknown]
  - Migraine [Unknown]
  - Hyperreflexia [Unknown]
  - Weight decreased [Unknown]
  - White matter lesion [Not Recovered/Not Resolved]
  - Spinal osteoarthritis [Recovering/Resolving]
  - Cervical spinal stenosis [Recovering/Resolving]
  - Paraesthesia [Unknown]
  - Lymphopenia [Unknown]
  - Psoas abscess [Unknown]
  - Temperature intolerance [Unknown]

NARRATIVE: CASE EVENT DATE: 20150424
